FAERS Safety Report 10509537 (Version 1)
Quarter: 2014Q4

REPORT INFORMATION
  Report Type: Spontaneous
  Country: JP (occurrence: JP)
  Receive Date: 20141009
  Receipt Date: 20141009
  Transmission Date: 20150528
  Serious: Yes (Hospitalization)
  Sender: FDA-Public Use
  Company Number: PHHY2014JP130765

PATIENT
  Age: 2 Year
  Sex: Male

DRUGS (6)
  1. DEXAMETASON [Suspect]
     Active Substance: DEXAMETHASONE
     Indication: IMMUNOSUPPRESSION
     Route: 054
  2. PREDNISOLONE. [Suspect]
     Active Substance: PREDNISOLONE
     Route: 048
  3. PREDNISOLONE. [Suspect]
     Active Substance: PREDNISOLONE
     Indication: IMMUNOSUPPRESSION
     Dosage: 1.2 MG/KG, UNK
     Route: 065
  4. MESALAZINE [Suspect]
     Active Substance: MESALAMINE
     Route: 048
  5. AZATHIOPRINE. [Suspect]
     Active Substance: AZATHIOPRINE
     Indication: IMMUNOSUPPRESSION
     Route: 065
  6. METHYLPREDNISOLONE. [Suspect]
     Active Substance: METHYLPREDNISOLONE
     Indication: IMMUNOSUPPRESSION
     Dosage: 20 MG/KG, UNK
     Route: 042

REACTIONS (6)
  - Glaucoma [Unknown]
  - Crohn^s disease [Unknown]
  - Device related infection [Unknown]
  - Hypertension [Unknown]
  - Failure to thrive [Unknown]
  - Drug ineffective [Unknown]
